FAERS Safety Report 9127634 (Version 1)
Quarter: 2013Q1

REPORT INFORMATION
  Report Type: Report from Study
  Country: US (occurrence: US)
  Receive Date: 20130122
  Receipt Date: 20130122
  Transmission Date: 20140127
  Serious: Yes (Hospitalization)
  Sender: FDA-Public Use
  Company Number: US-TEVA-381600USA

PATIENT
  Sex: Male

DRUGS (17)
  1. ZEBETA [Suspect]
     Dosage: 10/6.25MG
     Route: 048
  2. DASATINIB [Suspect]
     Indication: PROSTATE CANCER
     Route: 048
     Dates: start: 20120105
  3. ABIRATERONE ACETATE [Suspect]
     Indication: PROSTATE CANCER
     Route: 048
     Dates: start: 20110915
  4. DEGARELIX ACETATE [Suspect]
     Route: 058
  5. MULTIVITAMIN [Suspect]
     Route: 048
  6. ZOMETA [Suspect]
     Route: 042
  7. ALPRAZOLAM [Suspect]
     Indication: SLEEP DISORDER
     Route: 048
  8. KLOR-CON [Suspect]
     Route: 048
  9. TESSALON PERLE [Suspect]
     Dosage: 1-2 CAPSULES EVERY 8 HOURS
     Route: 048
  10. CLARITIN [Suspect]
     Route: 048
  11. ASPIRIN [Suspect]
     Route: 048
  12. OXYCODONE [Suspect]
     Indication: PAIN
     Dosage: 5-10MG EVERY 4 HOURS AS NEEDED
     Route: 048
  13. CARAFATE [Concomitant]
  14. FIRMAGON [Concomitant]
     Dates: end: 20120920
  15. METOPROLOL [Concomitant]
  16. PREDNISONE [Concomitant]
  17. REGLAN [Concomitant]

REACTIONS (2)
  - Pain [Recovered/Resolved]
  - Renal failure acute [Unknown]
